FAERS Safety Report 16408706 (Version 2)
Quarter: 2019Q2

REPORT INFORMATION
  Report Type: Spontaneous
  Country: US (occurrence: US)
  Receive Date: 20190610
  Receipt Date: 20190623
  Transmission Date: 20190711
  Serious: Yes (Life-Threatening, Other)
  Sender: FDA-Public Use
  Company Number: PHEH2019US023608

PATIENT
  Age: 10 Year
  Sex: Female
  Weight: 33 kg

DRUGS (3)
  1. FOCALIN XR [Suspect]
     Active Substance: DEXMETHYLPHENIDATE HYDROCHLORIDE
     Indication: ATTENTION DEFICIT/HYPERACTIVITY DISORDER
     Dosage: 10 MG, QD
     Route: 048
     Dates: start: 2017, end: 20190329
  2. FOCALIN XR [Suspect]
     Active Substance: DEXMETHYLPHENIDATE HYDROCHLORIDE
     Dosage: 15 MG (10 MG AND 5 MG TABLET)
     Route: 048
     Dates: start: 20190502, end: 20190529
  3. IBUPROFEN. [Concomitant]
     Active Substance: IBUPROFEN
     Indication: HEADACHE
     Dosage: 200 MG, UNK
     Route: 048
     Dates: start: 20190519

REACTIONS (13)
  - Necrosis [Unknown]
  - Genital lesion [Unknown]
  - Skin exfoliation [Unknown]
  - Cough [Unknown]
  - Pruritus [Unknown]
  - Product colour issue [Unknown]
  - Blister [Unknown]
  - Toxic epidermal necrolysis [Recovered/Resolved with Sequelae]
  - Nikolsky^s sign [Unknown]
  - Conjunctivitis [Unknown]
  - Pyrexia [Unknown]
  - Dysphagia [Unknown]
  - Rash [Unknown]

NARRATIVE: CASE EVENT DATE: 20190528
